FAERS Safety Report 4605745-6 (Version None)
Quarter: 2005Q2

REPORT INFORMATION
  Report Type: 
  Country: None (occurrence: None)
  Receive Date: 20050214
  Receipt Date: 20041022
  Transmission Date: 20051028
  Serious: No
  Sender: FDA-Public Use
  Company Number: USA041081976

PATIENT

DRUGS (2)
  1. CIALIS [Suspect]
     Dosage: 10 MG AS NEEDED
     Dates: start: 20041001
  2. LEVITRA [Concomitant]

REACTIONS (1)
  - DRUG INEFFECTIVE [None]
